FAERS Safety Report 6459090-7 (Version None)
Quarter: 2009Q4

REPORT INFORMATION
  Report Type: 
  Country: None (occurrence: None)
  Receive Date: 20091125
  Receipt Date: 20091125
  Transmission Date: 20100525
  Serious: Yes (Hospitalization)
  Sender: FDA-Public Use
  Company Number: None

PATIENT
  Age: 56 Year
  Sex: Female
  Weight: 86 kg

DRUGS (1)
  1. OXCARBAZEPINE [Suspect]
     Indication: CONVULSION
     Dosage: 600 MG BID PO
     Route: 048
     Dates: start: 20090813, end: 20090911

REACTIONS (3)
  - FALL [None]
  - FRACTURED COCCYX [None]
  - INAPPROPRIATE ANTIDIURETIC HORMONE SECRETION [None]
